FAERS Safety Report 18208632 (Version 1)
Quarter: 2020Q3

REPORT INFORMATION
  Report Type: Spontaneous
  Country: US (occurrence: US)
  Receive Date: 20200828
  Receipt Date: 20200828
  Transmission Date: 20201103
  Serious: No
  Sender: FDA-Public Use
  Company Number: US-VERTEX PHARMACEUTICALS-2020-017313

PATIENT
  Sex: Male

DRUGS (18)
  1. VITAMIN D [COLECALCIFEROL] [Concomitant]
     Active Substance: CHOLECALCIFEROL
     Dosage: 400?10 MICROGRAM
  2. LANTUS [Concomitant]
     Active Substance: INSULIN GLARGINE
     Dosage: UNK
  3. BENADRYL [ACRIVASTINE] [Concomitant]
     Active Substance: ACRIVASTINE
     Dosage: 25 MG
  4. TRIKAFTA [Suspect]
     Active Substance: ELEXACAFTOR\IVACAFTOR\TEZACAFTOR
     Indication: CYSTIC FIBROSIS
     Dosage: 100MG ELEXACAFTOR/50MG TEZACAFTOR/75MG IVACAFTOR AM AND 150MG IVACAFTOR PM
     Route: 048
  5. PULMOZYME [Concomitant]
     Active Substance: DORNASE ALFA
     Dosage: 1 MG
  6. GLUCAGON. [Concomitant]
     Active Substance: GLUCAGON
     Dosage: 1 MG
  7. CONCERTA [Concomitant]
     Active Substance: METHYLPHENIDATE HYDROCHLORIDE
     Dosage: 18 MG
  8. ZYRTEC [Concomitant]
     Active Substance: CETIRIZINE HYDROCHLORIDE
     Dosage: 10 MG
  9. MELATONIN [Concomitant]
     Active Substance: MELATONIN
     Dosage: 10 MG
  10. HUMALOG [Concomitant]
     Active Substance: INSULIN LISPRO
     Dosage: UNK
  11. LORAZEPAM. [Concomitant]
     Active Substance: LORAZEPAM
     Dosage: 0.5 MG
  12. FLONASE [Concomitant]
     Active Substance: FLUTICASONE PROPIONATE
     Dosage: UNK
  13. DULERA [Concomitant]
     Active Substance: FORMOTEROL FUMARATE DIHYDRATE\MOMETASONE FUROATE
     Dosage: UNK
  14. ALBUTEROL SULFATE. [Concomitant]
     Active Substance: ALBUTEROL SULFATE
     Dosage: UNK
  15. CREON [Concomitant]
     Active Substance: PANCRELIPASE AMYLASE\PANCRELIPASE LIPASE\PANCRELIPASE PROTEASE
     Dosage: UNK
  16. ALPRAZOLAM. [Concomitant]
     Active Substance: ALPRAZOLAM
     Dosage: 0.25 MG
  17. TRAZODONE [Concomitant]
     Active Substance: TRAZODONE HYDROCHLORIDE
     Dosage: 100 MG
  18. HYPERSAL [Concomitant]
     Active Substance: SODIUM CHLORIDE
     Dosage: 3.5 %

REACTIONS (5)
  - Illness [Unknown]
  - Vomiting [Unknown]
  - Rhinorrhoea [Unknown]
  - Sinusitis [Unknown]
  - Abdominal pain [Unknown]
